FAERS Safety Report 8964906 (Version 1)
Quarter: 2012Q4

REPORT INFORMATION
  Report Type: 
  Country: AU (occurrence: AU)
  Receive Date: 20121213
  Receipt Date: 20121213
  Transmission Date: 20130627
  Serious: Yes (Hospitalization)
  Sender: FDA-Public Use
  Company Number: AU-ROCHE-1167841

PATIENT
  Age: 53 Year
  Sex: Female
  Weight: 76 kg

DRUGS (11)
  1. MYCOPHENOLATE MOFETIL [Suspect]
     Indication: PRODUCT USED FOR UNKNOWN INDICATION
     Route: 048
     Dates: end: 20120608
  2. MYCOPHENOLATE MOFETIL [Suspect]
     Route: 048
  3. ASPIRIN [Concomitant]
  4. CALCIFEROL [Concomitant]
  5. CLONAZEPAM [Concomitant]
  6. DAPSONE [Concomitant]
  7. PREDNISOLONE [Concomitant]
  8. SERTRALINE HYDROCHLORIDE [Concomitant]
  9. TACROLIMUS [Concomitant]
  10. VALGANCICLOVIR [Concomitant]
  11. VITAMIN D NOS [Concomitant]

REACTIONS (1)
  - Febrile neutropenia [Recovered/Resolved]
